FAERS Safety Report 6593385-1 (Version None)
Quarter: 2010Q1

REPORT INFORMATION
  Report Type: 
  Country: None (occurrence: None)
  Receive Date: 20100222
  Receipt Date: 20090506
  Transmission Date: 20100710
  Serious: No
  Sender: FDA-Public Use
  Company Number: US-BRISTOL-MYERS SQUIBB COMPANY-14544332

PATIENT
  Age: 58 Year
  Sex: Female
  Weight: 59 kg

DRUGS (2)
  1. ORENCIA [Suspect]
     Indication: RHEUMATOID ARTHRITIS
     Dosage: 2 DF= 2 VIALS LAST INFUSION 3 WEEKS AGO
     Route: 042
     Dates: start: 20090101
  2. ESTRADIOL [Concomitant]

REACTIONS (4)
  - DRY MOUTH [None]
  - HEADACHE [None]
  - HOT FLUSH [None]
  - ORAL DISCOMFORT [None]
